FAERS Safety Report 18001913 (Version 1)
Quarter: 2020Q3

REPORT INFORMATION
  Report Type: Spontaneous
  Country: US (occurrence: US)
  Receive Date: 20200710
  Receipt Date: 20200710
  Transmission Date: 20201103
  Serious: Yes (Other)
  Sender: FDA-Public Use
  Company Number: US-SUN PHARMACEUTICAL INDUSTRIES LTD-2020R1-252606

PATIENT
  Age: 57 Year
  Sex: Male

DRUGS (1)
  1. PREDNISONE. [Suspect]
     Active Substance: PREDNISONE
     Indication: EOSINOPHILIA
     Dosage: 10 MILLIGRAM, DAILY
     Route: 065

REACTIONS (2)
  - Immune-mediated encephalitis [Unknown]
  - Disease progression [Unknown]
